FAERS Safety Report 5042862-3 (Version None)
Quarter: 2006Q3

REPORT INFORMATION
  Report Type: 
  Country: None (occurrence: None)
  Receive Date: 20060705
  Receipt Date: 20060531
  Transmission Date: 20061208
  Serious: Yes (Hospitalization)
  Sender: FDA-Public Use
  Company Number: JP-JPN-A200601617

PATIENT
  Age: 51 Year
  Sex: Male

DRUGS (4)
  1. FLUTIDE DISKUS [Suspect]
     Indication: ASTHMA
     Dosage: 200MCG TWICE PER DAY
     Route: 055
     Dates: start: 20031001
  2. UNIPHYL [Concomitant]
     Indication: ASTHMA
     Dosage: 200MG TWICE PER DAY
     Route: 048
     Dates: start: 20020824, end: 20050218
  3. ONON [Concomitant]
     Indication: ASTHMA
     Dosage: 225MG TWICE PER DAY
     Route: 048
     Dates: start: 20020829, end: 20021220
  4. HOKUNALIN [Concomitant]
     Indication: ASTHMA
     Dosage: 2MG TWICE PER DAY
     Route: 062
     Dates: start: 20020419

REACTIONS (4)
  - DYSPEPSIA [None]
  - OESOPHAGEAL ULCER [None]
  - PHARYNGOLARYNGEAL DISCOMFORT [None]
  - VOMITING [None]
